FAERS Safety Report 17545639 (Version 7)
Quarter: 2022Q3

REPORT INFORMATION
  Report Type: Report from Study
  Country: CO (occurrence: US)
  Receive Date: 20200316
  Receipt Date: 20220810
  Transmission Date: 20221027
  Serious: Yes (Hospitalization, Other)
  Sender: FDA-Public Use
  Company Number: CO-ABBVIE-20K-036-3320934-00

PATIENT
  Sex: Female
  Weight: 70 kg

DRUGS (8)
  1. HUMIRA [Suspect]
     Active Substance: ADALIMUMAB
     Indication: Product used for unknown indication
     Route: 058
     Dates: start: 20091007
  2. HUMIRA [Suspect]
     Active Substance: ADALIMUMAB
     Indication: Rheumatoid arthritis
     Dosage: CITRATE FREE
     Route: 058
     Dates: end: 20200309
  3. HUMIRA [Suspect]
     Active Substance: ADALIMUMAB
     Dosage: CITRATE FREE
     Route: 058
     Dates: start: 20220616
  4. CALENDULA [Concomitant]
     Active Substance: CALENDULA OFFICINALIS FLOWERING TOP
     Indication: Rheumatoid arthritis
     Route: 048
     Dates: start: 2019, end: 2019
  5. METHOTREXATE [Concomitant]
     Active Substance: METHOTREXATE
     Indication: Rheumatoid arthritis
     Route: 048
     Dates: start: 2009, end: 202003
  6. CALCIOVIT [Concomitant]
     Indication: Prophylaxis
  7. FOLIC ACID [Concomitant]
     Active Substance: FOLIC ACID
     Indication: Vitamin supplementation
     Route: 048
  8. METHOTREXATE [Concomitant]
     Active Substance: METHOTREXATE
     Indication: Product used for unknown indication

REACTIONS (42)
  - Anaphylactic shock [Recovering/Resolving]
  - Drug hypersensitivity [Recovering/Resolving]
  - Loss of consciousness [Recovering/Resolving]
  - Asthenia [Recovering/Resolving]
  - Aphonia [Recovering/Resolving]
  - Joint swelling [Recovering/Resolving]
  - Malaise [Not Recovered/Not Resolved]
  - Gait disturbance [Unknown]
  - Joint dislocation [Not Recovered/Not Resolved]
  - Overweight [Recovering/Resolving]
  - Abnormal faeces [Recovering/Resolving]
  - Inflammation [Recovered/Resolved]
  - Inflammation [Recovered/Resolved]
  - Inflammation [Not Recovered/Not Resolved]
  - Insomnia [Not Recovered/Not Resolved]
  - Torticollis [Unknown]
  - Arthralgia [Recovered/Resolved]
  - Abdominal pain upper [Recovering/Resolving]
  - Hypertension [Recovering/Resolving]
  - Pain in extremity [Not Recovered/Not Resolved]
  - Arthralgia [Recovering/Resolving]
  - Hypersensitivity [Recovering/Resolving]
  - Vomiting [Recovering/Resolving]
  - Rheumatoid arthritis [Recovering/Resolving]
  - Pain [Unknown]
  - Pain in extremity [Unknown]
  - Pain in jaw [Unknown]
  - Neuralgia [Recovering/Resolving]
  - Pain [Recovering/Resolving]
  - Peripheral swelling [Not Recovered/Not Resolved]
  - Arthralgia [Recovered/Resolved]
  - Hypertension [Recovered/Resolved]
  - Arthropathy [Recovering/Resolving]
  - Osteoarthritis [Unknown]
  - Limb discomfort [Unknown]
  - Pain [Unknown]
  - Fatigue [Unknown]
  - Dysstasia [Recovering/Resolving]
  - Mobility decreased [Recovering/Resolving]
  - Burning sensation [Recovering/Resolving]
  - Inflammation [Recovering/Resolving]
  - Arthralgia [Unknown]

NARRATIVE: CASE EVENT DATE: 20090101
